FAERS Safety Report 23907362 (Version 2)
Quarter: 2024Q2

REPORT INFORMATION
  Report Type: Spontaneous
  Country: JP (occurrence: None)
  Receive Date: 20240528
  Receipt Date: 20240628
  Transmission Date: 20240716
  Serious: Yes (Hospitalization)
  Sender: FDA-Public Use
  Company Number: 2024A121035

PATIENT
  Age: 82 Year
  Sex: Male

DRUGS (3)
  1. ONDEXXYA [Suspect]
     Active Substance: ANDEXANET ALFA
     Dosage: ADMINISTRATION OF 400 MG AT A RATE OF 30 MG/MIN FOLLOWED BY INTRAVENOUS ADMINISTRATION OF 480 MG ...
     Route: 042
     Dates: start: 20231017, end: 20231017
  2. XARELTO [Concomitant]
     Active Substance: RIVAROXABAN
     Dosage: 10.0MG UNKNOWN
  3. EDOXABAN TOSYLATE [Concomitant]
     Active Substance: EDOXABAN TOSYLATE
     Dosage: 15.0MG UNKNOWN

REACTIONS (1)
  - Cerebral infarction [Unknown]

NARRATIVE: CASE EVENT DATE: 20231019
